FAERS Safety Report 7680178-7 (Version None)
Quarter: 2011Q3

REPORT INFORMATION
  Report Type: 
  Country: None (occurrence: None)
  Receive Date: 20110812
  Receipt Date: 20110803
  Transmission Date: 20111222
  Serious: Yes (Other)
  Sender: FDA-Public Use
  Company Number: US-BAYER-2010-002663

PATIENT
  Age: 29 Year
  Sex: Female
  Weight: 95 kg

DRUGS (6)
  1. COREG [Concomitant]
     Indication: BLOOD PRESSURE MANAGEMENT
     Dosage: UNK UNK, QD
     Route: 048
  2. DIGOXIN [Concomitant]
     Indication: CARDIAC DISORDER
     Dosage: UNK UNK, QD
     Route: 048
  3. ALTACE [Concomitant]
     Indication: BLOOD PRESSURE MANAGEMENT
     Dosage: UNK UNK, QD
     Route: 048
  4. COREG [Concomitant]
     Indication: CARDIAC DISORDER
  5. YASMIN [Suspect]
     Indication: PREMENSTRUAL SYNDROME
     Dosage: UNK
     Route: 048
     Dates: start: 20050501, end: 20061101
  6. SPIRONOLACTONE [Concomitant]
     Indication: DIURETIC THERAPY
     Dosage: UNK UNK, QD
     Route: 048

REACTIONS (2)
  - THROMBOSIS [None]
  - PAIN [None]
